FAERS Safety Report 5519419-0 (Version None)
Quarter: 2007Q4

REPORT INFORMATION
  Report Type: 
  Country: None (occurrence: None)
  Receive Date: 20071114
  Receipt Date: 20071031
  Transmission Date: 20080405
  Serious: Yes (Hospitalization)
  Sender: FDA-Public Use
  Company Number: 013247

PATIENT
  Age: 68 Year
  Sex: Female

DRUGS (2)
  1. PRIALT [Suspect]
     Indication: PAIN IN EXTREMITY
     Dosage: 0.2 UG, ONCE/HOUR, INTRATHECAL : 0.1 UG, ONCE/HOUR, INTRATHECAL
     Route: 037
     Dates: start: 20070914, end: 20071020
  2. OXYCONTIN [Concomitant]

REACTIONS (3)
  - CONFUSIONAL STATE [None]
  - MUSCLE RIGIDITY [None]
  - PSYCHOMOTOR HYPERACTIVITY [None]
